FAERS Safety Report 7360181-7 (Version None)
Quarter: 2011Q1

REPORT INFORMATION
  Report Type: 
  Country: None (occurrence: None)
  Receive Date: 20110318
  Receipt Date: 20110315
  Transmission Date: 20110831
  Serious: No
  Sender: FDA-Public Use
  Company Number: US-PFIZER INC-2011025395

PATIENT
  Sex: Female
  Weight: 63.49 kg

DRUGS (2)
  1. DICLOFENAC [Concomitant]
     Indication: ARTHRITIS
     Dosage: 75 MG, 2X/DAY
     Dates: start: 20100901
  2. LYRICA [Suspect]
     Indication: INTERVERTEBRAL DISC PROTRUSION
     Dosage: 50 MG, 1X/DAY
     Route: 048
     Dates: start: 20101101, end: 20110101

REACTIONS (1)
  - DIARRHOEA [None]
